FAERS Safety Report 23202054 (Version 2)
Quarter: 2023Q4

REPORT INFORMATION
  Report Type: Spontaneous
  Country: US (occurrence: US)
  Receive Date: 20231120
  Receipt Date: 20231226
  Transmission Date: 20240110
  Serious: Yes (Hospitalization, Other)
  Sender: FDA-Public Use
  Company Number: US-SA-SAC20231115001607

PATIENT
  Age: 77 Year
  Sex: Male

DRUGS (1)
  1. REZUROCK [Suspect]
     Active Substance: BELUMOSUDIL
     Indication: Chronic myeloid leukaemia
     Dosage: 200 MG, QD
     Route: 048
     Dates: start: 20220110

REACTIONS (3)
  - Pneumonia [Unknown]
  - Dyspnoea [Unknown]
  - Product use in unapproved indication [Unknown]

NARRATIVE: CASE EVENT DATE: 20220110
